FAERS Safety Report 8293371-X (Version None)
Quarter: 2012Q2

REPORT INFORMATION
  Report Type: 
  Country: None (occurrence: None)
  Receive Date: 20120417
  Receipt Date: 20120216
  Transmission Date: 20120825
  Serious: No
  Sender: FDA-Public Use
  Company Number: US-ASTRAZENECA-2012SE11539

PATIENT
  Age: 72 Year
  Sex: Female

DRUGS (3)
  1. PRILOSEC OTC [Suspect]
     Route: 048
  2. NEXIUM [Suspect]
     Route: 048
  3. PREVACID [Concomitant]

REACTIONS (6)
  - WRONG DRUG ADMINISTERED [None]
  - COUGH [None]
  - DYSPEPSIA [None]
  - OESOPHAGITIS [None]
  - VOMITING [None]
  - DRUG INEFFECTIVE [None]
